FAERS Safety Report 8560671-5 (Version None)
Quarter: 2012Q3

REPORT INFORMATION
  Report Type: 
  Country: None (occurrence: None)
  Receive Date: 20120802
  Receipt Date: 20120731
  Transmission Date: 20120928
  Serious: No
  Sender: FDA-Public Use
  Company Number: US-PFIZER INC-2012186602

PATIENT
  Sex: Female
  Weight: 63.492 kg

DRUGS (1)
  1. LIPITOR [Suspect]
     Indication: BLOOD CHOLESTEROL INCREASED
     Dosage: UNKNOWN DOSE HALF TABLET DAILY
     Route: 048
     Dates: start: 20120101, end: 20120701

REACTIONS (2)
  - PAIN [None]
  - FATIGUE [None]
